FAERS Safety Report 7171276-5 (Version None)
Quarter: 2010Q4

REPORT INFORMATION
  Report Type: 
  Country: None (occurrence: None)
  Receive Date: 20101217
  Receipt Date: 20101207
  Transmission Date: 20110411
  Serious: Yes (Hospitalization, Disabling, Other)
  Sender: FDA-Public Use
  Company Number: US-ELI_LILLY_AND_COMPANY-US201012003143

PATIENT
  Sex: Male

DRUGS (1)
  1. HUMALOG MIX 75/25 [Suspect]
     Indication: TYPE 2 DIABETES MELLITUS
     Dosage: UNK, AS NEEDED
     Dates: start: 19940101

REACTIONS (18)
  - ABASIA [None]
  - BLOOD GLUCOSE INCREASED [None]
  - CLAVICLE FRACTURE [None]
  - CLOSTRIDIAL INFECTION [None]
  - CORONARY ARTERY BYPASS [None]
  - DYSPNOEA [None]
  - FALL [None]
  - HEAD INJURY [None]
  - INJECTION SITE HAEMORRHAGE [None]
  - JAW DISORDER [None]
  - JOINT INJURY [None]
  - MALAISE [None]
  - NON-CARDIAC CHEST PAIN [None]
  - PAIN [None]
  - RECTAL HAEMORRHAGE [None]
  - ROAD TRAFFIC ACCIDENT [None]
  - SWEAT GLAND DISORDER [None]
  - THYROID DISORDER [None]
